FAERS Safety Report 5105666-9 (Version None)
Quarter: 2006Q3

REPORT INFORMATION
  Report Type: 
  Country: None (occurrence: None)
  Receive Date: 20060915
  Receipt Date: 20060215
  Transmission Date: 20061208
  Serious: Yes (Death, Life-Threatening, Other)
  Sender: FDA-Public Use
  Company Number: FR-BRISTOL-MYERS SQUIBB COMPANY-13284831

PATIENT
  Age: 54 Year
  Sex: Female

DRUGS (6)
  1. DASATINIB [Suspect]
     Indication: CHRONIC MYELOID LEUKAEMIA
     Route: 048
     Dates: start: 20060210, end: 20060210
  2. CLAVENTIN [Concomitant]
     Dates: start: 20060206
  3. AMIKLIN [Concomitant]
  4. VANCOMYCIN [Concomitant]
     Dates: start: 20060206, end: 20060201
  5. TAVANIC [Concomitant]
     Dates: start: 20060206
  6. SKENAN [Concomitant]

REACTIONS (16)
  - BLOOD LACTATE DEHYDROGENASE INCREASED [None]
  - BRONCHITIS [None]
  - CARDIAC FAILURE [None]
  - CARDIOGENIC SHOCK [None]
  - CHEST PAIN [None]
  - COMA [None]
  - GENERAL PHYSICAL HEALTH DETERIORATION [None]
  - LUNG DISORDER [None]
  - MALIGNANT NEOPLASM PROGRESSION [None]
  - MULTI-ORGAN FAILURE [None]
  - PLEURAL EFFUSION [None]
  - RENAL FAILURE [None]
  - RESPIRATORY FAILURE [None]
  - SINUSITIS [None]
  - SPLENOMEGALY [None]
  - TUMOUR LYSIS SYNDROME [None]
